FAERS Safety Report 12723895 (Version 1)
Quarter: 2016Q3

REPORT INFORMATION
  Report Type: Spontaneous
  Country: JP (occurrence: JP)
  Receive Date: 20160908
  Receipt Date: 20160908
  Transmission Date: 20161109
  Serious: Yes (Other)
  Sender: FDA-Public Use
  Company Number: JP-NOVOPROD-507990

PATIENT
  Sex: Female

DRUGS (1)
  1. RYZODEG 70/30 [Suspect]
     Active Substance: INSULIN ASPART\INSULIN DEGLUDEC
     Indication: DIABETES MELLITUS
     Dosage: BID
     Route: 058
     Dates: start: 201607

REACTIONS (4)
  - Spinal column stenosis [Unknown]
  - Condition aggravated [Unknown]
  - Visual impairment [Unknown]
  - Hyperglycaemia [Unknown]

NARRATIVE: CASE EVENT DATE: 20160829
